FAERS Safety Report 9238923 (Version 1)
Quarter: 2013Q2

REPORT INFORMATION
  Report Type: Spontaneous
  Country: US (occurrence: US)
  Receive Date: 20130418
  Receipt Date: 20130418
  Transmission Date: 20140414
  Serious: Yes (Other)
  Sender: FDA-Public Use
  Company Number: US-ELI_LILLY_AND_COMPANY-US201304003098

PATIENT
  Sex: Male
  Weight: 99.32 kg

DRUGS (11)
  1. FLUOXETINE HYDROCHLORIDE [Suspect]
     Indication: NERVOUSNESS
     Dosage: 20 MG, BID
  2. HALOPERIDOL [Concomitant]
     Indication: NERVOUSNESS
     Dosage: 1 DF, QD
  3. LITHIUM [Concomitant]
     Indication: NERVOUSNESS
     Dosage: 300 MG, UNK
  4. LISINOPRIL [Concomitant]
     Indication: CARDIAC DISORDER
     Dosage: 40 MG, BID
  5. LOVASTATIN [Concomitant]
     Indication: CARDIAC DISORDER
     Dosage: 40 MG, UNK
  6. GEMFIBROZIL [Concomitant]
     Dosage: 60 MG, BID
  7. NIFEDIPINE [Concomitant]
     Indication: CARDIAC DISORDER
     Dosage: 30 MG, UNK
  8. ATENOLOL [Concomitant]
     Indication: CARDIAC DISORDER
     Dosage: 50 MG, UNK
  9. OMEPRAZOLE [Concomitant]
     Indication: GASTROINTESTINAL DISORDER
     Dosage: 20 MG, BID
  10. CHANTIX [Concomitant]
     Indication: TOBACCO USER
     Dosage: UNK
     Dates: end: 200910
  11. METFORMIN [Concomitant]
     Indication: DIABETES MELLITUS
     Dosage: 850 MG, BID

REACTIONS (9)
  - Loss of consciousness [Unknown]
  - Chest pain [Recovering/Resolving]
  - Mood swings [Recovering/Resolving]
  - Insomnia [Recovering/Resolving]
  - Thinking abnormal [Recovering/Resolving]
  - Aggression [Recovering/Resolving]
  - Disturbance in attention [Recovering/Resolving]
  - Off label use [Unknown]
  - Drug interaction [Recovering/Resolving]
